FAERS Safety Report 8836923 (Version 4)
Quarter: 2012Q4

REPORT INFORMATION
  Report Type: 
  Country: JP (occurrence: JP)
  Receive Date: 20121012
  Receipt Date: 20121126
  Transmission Date: 20130627
  Serious: Yes (Death, Hospitalization)
  Sender: FDA-Public Use
  Company Number: PHHY2012JP090023

PATIENT
  Sex: Male

DRUGS (4)
  1. CICLOSPORIN [Suspect]
     Indication: NEPHROTIC SYNDROME
     Dosage: 150 mg, QD
     Route: 048
  2. PREDNISOLONE [Suspect]
     Indication: NEPHROTIC SYNDROME
     Dosage: 30 mg, QD
  3. PREDNISOLONE [Suspect]
     Dosage: 40 mg, QD
  4. HEPARIN [Suspect]
     Route: 042

REACTIONS (9)
  - Cellulitis [Fatal]
  - Bacteraemia [Fatal]
  - Retroperitoneal haemorrhage [Fatal]
  - Shock [Unknown]
  - Dyspnoea [Unknown]
  - Back pain [Unknown]
  - Oedema [Unknown]
  - Protein urine present [Unknown]
  - Nephrotic syndrome [Unknown]
